FAERS Safety Report 25524199 (Version 1)
Quarter: 2025Q3

REPORT INFORMATION
  Report Type: Spontaneous
  Country: JP (occurrence: JP)
  Receive Date: 20250707
  Receipt Date: 20250707
  Transmission Date: 20251021
  Serious: Yes (Other)
  Sender: MYLAN
  Company Number: JP-VIATRISJAPAN-2025M1054175AA

PATIENT
  Age: 71 Year
  Sex: Female

DRUGS (20)
  1. ANHIBA [Suspect]
     Active Substance: ACETAMINOPHEN
     Indication: Pelvic pain
     Dosage: 1500 MILLIGRAM, QD
  2. ANHIBA [Suspect]
     Active Substance: ACETAMINOPHEN
     Dosage: 1500 MILLIGRAM, QD
     Route: 065
  3. ANHIBA [Suspect]
     Active Substance: ACETAMINOPHEN
     Dosage: 1500 MILLIGRAM, QD
     Route: 065
  4. ANHIBA [Suspect]
     Active Substance: ACETAMINOPHEN
     Dosage: 1500 MILLIGRAM, QD
  5. HYDROMORPHONE [Suspect]
     Active Substance: HYDROMORPHONE
     Indication: Pelvic pain
     Dosage: 2 MILLIGRAM, QD
  6. HYDROMORPHONE [Suspect]
     Active Substance: HYDROMORPHONE
     Dosage: 2 MILLIGRAM, QD
  7. HYDROMORPHONE [Suspect]
     Active Substance: HYDROMORPHONE
     Dosage: 2 MILLIGRAM, QD
     Route: 048
  8. HYDROMORPHONE [Suspect]
     Active Substance: HYDROMORPHONE
     Dosage: 2 MILLIGRAM, QD
     Route: 048
  9. HYDROMORPHONE [Suspect]
     Active Substance: HYDROMORPHONE
  10. HYDROMORPHONE [Suspect]
     Active Substance: HYDROMORPHONE
  11. HYDROMORPHONE [Suspect]
     Active Substance: HYDROMORPHONE
     Route: 048
  12. HYDROMORPHONE [Suspect]
     Active Substance: HYDROMORPHONE
     Route: 048
  13. MIROGABALIN [Suspect]
     Active Substance: MIROGABALIN
     Indication: Pelvic pain
     Dosage: 10 MILLIGRAM, QD
  14. MIROGABALIN [Suspect]
     Active Substance: MIROGABALIN
     Dosage: 10 MILLIGRAM, QD
     Route: 065
  15. MIROGABALIN [Suspect]
     Active Substance: MIROGABALIN
     Dosage: 10 MILLIGRAM, QD
     Route: 065
  16. MIROGABALIN [Suspect]
     Active Substance: MIROGABALIN
     Dosage: 10 MILLIGRAM, QD
  17. ALCOHOL [Concomitant]
     Active Substance: ALCOHOL
     Indication: Pelvic pain
  18. ALCOHOL [Concomitant]
     Active Substance: ALCOHOL
     Route: 065
  19. ALCOHOL [Concomitant]
     Active Substance: ALCOHOL
     Route: 065
  20. ALCOHOL [Concomitant]
     Active Substance: ALCOHOL

REACTIONS (3)
  - Delirium [Unknown]
  - Amnesia [Unknown]
  - Condition aggravated [Unknown]
